FAERS Safety Report 12540789 (Version 1)
Quarter: 2016Q3

REPORT INFORMATION
  Report Type: Spontaneous
  Country: DE (occurrence: DE)
  Receive Date: 20160708
  Receipt Date: 20160708
  Transmission Date: 20161109
  Serious: Yes (Hospitalization, Other)
  Sender: FDA-Public Use
  Company Number: ALCN2016DE004641

PATIENT
  Age: 27 Year
  Sex: Male

DRUGS (8)
  1. DIAMOX SEQUELS [Concomitant]
     Active Substance: ACETAZOLAMIDE
     Indication: POSTOPERATIVE CARE
     Dosage: 1 DF, TID
     Route: 048
  2. CIPROBAY//CIPROFLOXACIN [Concomitant]
     Active Substance: CIPROFLOXACIN
     Indication: POSTOPERATIVE CARE
     Dosage: 1 DF, UNK
     Route: 065
  3. KALINOR//POTASSIUM CHLORIDE [Concomitant]
     Indication: POSTOPERATIVE CARE
     Dosage: 1 DF, QD
     Route: 065
  4. VIGAMOX [Suspect]
     Active Substance: MOXIFLOXACIN HYDROCHLORIDE
     Dosage: 1 DF, QD
     Route: 047
  5. FLOXAL [Suspect]
     Active Substance: OFLOXACIN
     Indication: POSTOPERATIVE CARE
     Dosage: 1 DF, 5QD
     Route: 047
  6. MONODEX [Suspect]
     Active Substance: DEXAMETHASONE
     Dosage: 1 DF, QD
     Route: 047
  7. MONODEX [Suspect]
     Active Substance: DEXAMETHASONE
     Indication: POSTOPERATIVE CARE
     Dosage: 1 DF, 5QD
     Route: 047
  8. VIGAMOX [Suspect]
     Active Substance: MOXIFLOXACIN HYDROCHLORIDE
     Indication: POSTOPERATIVE CARE
     Dosage: 1 DF, 5QD
     Route: 047

REACTIONS (2)
  - Ulcerative keratitis [Recovered/Resolved]
  - Product use issue [Unknown]
